FAERS Safety Report 7217603-1 (Version None)
Quarter: 2011Q1

REPORT INFORMATION
  Report Type: 
  Country: None (occurrence: None)
  Receive Date: 20110110
  Receipt Date: 20110105
  Transmission Date: 20110831
  Serious: Yes (Hospitalization, Other)
  Sender: FDA-Public Use
  Company Number: BR-ROCHE-718423

PATIENT
  Sex: Male
  Weight: 80 kg

DRUGS (8)
  1. ALLOPURINOL [Concomitant]
  2. TOCILIZUMAB [Suspect]
     Indication: RHEUMATOID ARTHRITIS
     Dosage: FORM: INFUSION;12 INFUSIONS
     Route: 042
     Dates: start: 20091201, end: 20110104
  3. LISINOPRIL [Concomitant]
  4. TORSILAX [Concomitant]
  5. METHOTREXATE [Concomitant]
  6. CHLOROQUINE [Concomitant]
  7. FOLIC ACID [Concomitant]
  8. CARBAMAZEPINE [Concomitant]

REACTIONS (8)
  - HAEMORRHOIDS [None]
  - BLOOD URIC ACID INCREASED [None]
  - MYELOPATHY [None]
  - DRUG INEFFECTIVE [None]
  - INFLAMMATION [None]
  - ASTHENIA [None]
  - ARTHRALGIA [None]
  - DUODENAL ULCER [None]
